FAERS Safety Report 8320740-1 (Version None)
Quarter: 2012Q1

REPORT INFORMATION
  Report Type: 
  Country: None (occurrence: None)
  Receive Date: 20120315
  Receipt Date: 20110202
  Transmission Date: 20120608
  Serious: No
  Sender: FDA-Public Use
  Company Number: PHHY2011US09631

PATIENT
  Age: 16 Year
  Sex: Female

DRUGS (1)
  1. GILENYA [Suspect]
     Dosage: 0.5 MG, QD, ORAL
     Route: 048

REACTIONS (4)
  - NAUSEA [None]
  - HEART RATE INCREASED [None]
  - HYPOAESTHESIA [None]
  - VERTIGO [None]
